FAERS Safety Report 10313287 (Version 4)
Quarter: 2015Q1

REPORT INFORMATION
  Report Type: Spontaneous
  Country: US (occurrence: None)
  Receive Date: 20140716
  Receipt Date: 20150205
  Transmission Date: 20150720
  Serious: Yes (Death, Hospitalization)
  Sender: FDA-Public Use
  Company Number: 2014SGN00396

PATIENT
  Age: 78 Year
  Sex: Male
  Weight: 103.4 kg

DRUGS (6)
  1. BRENTUXIMAB VEDOTIN (BRENTUXIMAB VEDOTIN) INJECTION [Suspect]
     Active Substance: BRENTUXIMAB VEDOTIN
     Indication: ACUTE MYELOID LEUKAEMIA
     Dosage: 2.4 MG/KG Q21D, INTRAVENOUS
     Route: 042
     Dates: start: 20140401, end: 20140401
  2. LIPITOR [Concomitant]
     Active Substance: ATORVASTATIN CALCIUM
  3. CALCIUM (CALCIUM) [Concomitant]
     Active Substance: CALCIUM
  4. BENICAR HCT (HYDROCHLOROTHIAZIDE, OLMESERTAN MEDOXOMIL) [Concomitant]
  5. CEFPODOXIME (CEFPODOXIME) [Concomitant]
  6. VALTREX [Concomitant]
     Active Substance: VALACYCLOVIR HYDROCHLORIDE

REACTIONS (24)
  - Diabetic ketoacidosis [None]
  - Fusarium infection [None]
  - Blood pressure increased [None]
  - QRS axis abnormal [None]
  - Atelectasis [None]
  - Dyspnoea [None]
  - Unresponsive to stimuli [None]
  - Hyperglycaemia [None]
  - Metabolic acidosis [None]
  - Thrombocytopenia [None]
  - Restlessness [None]
  - Pleural effusion [None]
  - Aspiration [None]
  - Lung infection [None]
  - Ascites [None]
  - Stenotrophomonas test positive [None]
  - Delirium [None]
  - Blood lactate dehydrogenase increased [None]
  - Pancreatitis [None]
  - Constipation [None]
  - Skin candida [None]
  - Pneumonia [None]
  - Superinfection [None]
  - Electrolyte imbalance [None]

NARRATIVE: CASE EVENT DATE: 20140411
